FAERS Safety Report 8957854 (Version 2)
Quarter: 2012Q4

REPORT INFORMATION
  Report Type: 
  Country: DE (occurrence: DE)
  Receive Date: 20121211
  Receipt Date: 20121219
  Transmission Date: 20130627
  Serious: Yes (Life-Threatening, Other)
  Sender: FDA-Public Use
  Company Number: DE-WATSON-2012-20807

PATIENT

DRUGS (1)
  1. OMEPRAZOLE (UNKNOWN) [Suspect]
     Indication: GASTROOESOPHAGEAL REFLUX DISEASE
     Dosage: UNK, unknown
     Route: 065

REACTIONS (2)
  - Respiratory distress [Recovered/Resolved]
  - Bronchospasm [Recovered/Resolved]
